FAERS Safety Report 14710698 (Version 1)
Quarter: 2018Q2

REPORT INFORMATION
  Report Type: Spontaneous
  Country: US (occurrence: US)
  Receive Date: 20180403
  Receipt Date: 20180403
  Transmission Date: 20180711
  Serious: No
  Sender: FDA-Public Use
  Company Number: US-ROCHE-1931819

PATIENT
  Sex: Female

DRUGS (8)
  1. LEVOTHYROXINE SODIUM. [Concomitant]
     Active Substance: LEVOTHYROXINE SODIUM
  2. OMEPRAZOLE. [Concomitant]
     Active Substance: OMEPRAZOLE
  3. ERIVEDGE [Suspect]
     Active Substance: VISMODEGIB
     Indication: NEOPLASM SKIN
     Route: 048
     Dates: start: 20160520
  4. ZESTORETIC [Concomitant]
     Active Substance: HYDROCHLOROTHIAZIDE\LISINOPRIL
  5. PREDNISOLONE. [Concomitant]
     Active Substance: PREDNISOLONE
  6. LEVOTHYROXINE. [Concomitant]
     Active Substance: LEVOTHYROXINE
  7. LISINOPRIL. [Concomitant]
     Active Substance: LISINOPRIL
  8. VITAMIN D3 [Concomitant]
     Active Substance: CHOLECALCIFEROL

REACTIONS (3)
  - Bladder pain [Unknown]
  - Dysgeusia [Unknown]
  - Myalgia [Unknown]
